FAERS Safety Report 8966040 (Version 1)
Quarter: 2012Q4

REPORT INFORMATION
  Report Type: 
  Country: US (occurrence: US)
  Receive Date: 20121217
  Receipt Date: 20121217
  Transmission Date: 20130627
  Serious: Yes (Hospitalization)
  Sender: FDA-Public Use
  Company Number: US-AMGEN-USASP2012080585

PATIENT
  Age: 62 Year
  Sex: Male

DRUGS (1)
  1. ENBREL [Suspect]
     Indication: PSORIATIC ARTHROPATHY
     Dosage: 50 mg, qwk
     Dates: start: 20051001, end: 20120601

REACTIONS (4)
  - Bladder cancer [Recovered/Resolved]
  - Peripheral artery thrombosis [Recovered/Resolved]
  - Pulmonary thrombosis [Recovered/Resolved]
  - Prostate cancer [Recovered/Resolved]
